FAERS Safety Report 4305750-3 (Version None)
Quarter: 2004Q1

REPORT INFORMATION
  Report Type: 
  Country: None (occurrence: None)
  Receive Date: 20040225
  Receipt Date: 20040216
  Transmission Date: 20041129
  Serious: Yes (Other)
  Sender: FDA-Public Use
  Company Number: HQWYE108118FEB04

PATIENT
  Age: 66 Year
  Sex: Male

DRUGS (9)
  1. CYCLOSPORINE [Suspect]
     Indication: PROPHYLAXIS AGAINST TRANSPLANT REJECTION
     Dosage: 175 MG 1X PER 1 DAY, ORAL
     Route: 048
     Dates: start: 20000415
  2. AZATHIOPRINE [Concomitant]
  3. PRAVASTATIN SODIUM [Concomitant]
  4. ATENOLOL [Concomitant]
  5. DILTIAZEM HYDROCHLORIDE [Concomitant]
  6. FUROSEMIDE [Concomitant]
  7. COLCHICINE (COLCHICINE) [Concomitant]
  8. PROBENECID [Concomitant]
  9. PREDNISOLONE [Concomitant]

REACTIONS (1)
  - SQUAMOUS CELL CARCINOMA [None]
